FAERS Safety Report 4889522-7 (Version None)
Quarter: 2006Q1

REPORT INFORMATION
  Report Type: 
  Country: None (occurrence: None)
  Receive Date: 20060124
  Receipt Date: 20060109
  Transmission Date: 20060701
  Serious: Yes (Hospitalization)
  Sender: FDA-Public Use
  Company Number: FRWYE285909JAN06

PATIENT
  Age: 60 Year
  Sex: Female

DRUGS (3)
  1. ENBREL [Suspect]
     Indication: RHEUMATOID ARTHRITIS
     Route: 058
     Dates: start: 20040101, end: 20050201
  2. CORTANCYL [Concomitant]
     Route: 048
     Dates: start: 19950101
  3. NOVATREX [Concomitant]
     Route: 048

REACTIONS (4)
  - ARTHRODESIS [None]
  - SEPTIC ARTHRITIS STAPHYLOCOCCAL [None]
  - SKIN INFECTION [None]
  - SUTURE RUPTURE [None]
